FAERS Safety Report 18250985 (Version 1)
Quarter: 2020Q3

REPORT INFORMATION
  Report Type: Report from Study
  Country: US (occurrence: US)
  Receive Date: 20200909
  Receipt Date: 20200909
  Transmission Date: 20201103
  Serious: Yes (Hospitalization)
  Sender: FDA-Public Use
  Company Number: US-MYLANLABS-2019M1108433

PATIENT
  Sex: Female
  Weight: 53.6 kg

DRUGS (8)
  1. SYMBICORT [Concomitant]
     Active Substance: BUDESONIDE\FORMOTEROL FUMARATE DIHYDRATE
     Indication: LIVER DISORDER
     Dosage: 2 PUFFS, BID
     Dates: start: 20100630
  2. ALBUTEROL                          /00139501/ [Concomitant]
     Active Substance: ALBUTEROL
     Indication: LIVER DISORDER
     Dosage: 3 MILLILITER, Q6H
     Dates: start: 20151015
  3. TOBI PODHALER [Suspect]
     Active Substance: TOBRAMYCIN
     Indication: INFECTIVE PULMONARY EXACERBATION OF CYSTIC FIBROSIS
     Dosage: 112 MILLIGRAM, BID
     Route: 055
     Dates: start: 20190817, end: 20190820
  4. IVACAFTOR;TEZACAFTOR [Concomitant]
     Active Substance: IVACAFTOR\TEZACAFTOR
     Indication: CFTR GENE MUTATION
     Dosage: 2 DOSAGE FORM, BID (AM AND HS)
     Dates: start: 20180606
  5. TOBI PODHALER [Suspect]
     Active Substance: TOBRAMYCIN
     Indication: CYSTIC FIBROSIS
  6. PULMOZYME [Concomitant]
     Active Substance: DORNASE ALFA
     Indication: LIVER DISORDER
     Dosage: 2.5 MILLILITER, QD, INH
     Dates: start: 20070412
  7. PROAIR HFA [Concomitant]
     Active Substance: ALBUTEROL SULFATE
     Indication: LIVER DISORDER
     Dosage: 2 PUFFS INHX9H
  8. ALENDRONATE [Concomitant]
     Active Substance: ALENDRONATE SODIUM
     Indication: BONE DENSITY DECREASED
     Dosage: 1 DOSAGE FORM, QW (10 MG)
     Route: 048
     Dates: start: 20140609

REACTIONS (2)
  - Drug ineffective [Recovering/Resolving]
  - Cough [Recovering/Resolving]
